FAERS Safety Report 8091327-3 (Version None)
Quarter: 2012Q1

REPORT INFORMATION
  Report Type: 
  Country: None (occurrence: None)
  Receive Date: 20120131
  Receipt Date: 20120123
  Transmission Date: 20120608
  Serious: Yes (Hospitalization)
  Sender: FDA-Public Use
  Company Number: US-US-EMD SERONO, INC.-7108599

PATIENT
  Sex: Female
  Weight: 64 kg

DRUGS (7)
  1. GABAPENTIN [Concomitant]
     Indication: NEURALGIA
  2. ZANAFLEX [Concomitant]
     Indication: MUSCLE SPASMS
  3. TOPAMAX [Concomitant]
     Indication: HEADACHE
  4. FLUVIRIN [Suspect]
     Indication: PRODUCT USED FOR UNKNOWN INDICATION
     Dates: start: 20111201, end: 20111201
  5. PNEUMOVAX 23 [Suspect]
     Indication: PRODUCT USED FOR UNKNOWN INDICATION
     Dates: start: 20111201, end: 20111201
  6. REBIF [Suspect]
     Indication: MULTIPLE SCLEROSIS
     Route: 058
     Dates: start: 20110524
  7. ZOLOFT [Concomitant]
     Indication: DEPRESSION

REACTIONS (3)
  - DRUG HYPERSENSITIVITY [None]
  - HYPERSENSITIVITY [None]
  - CELLULITIS [None]
